FAERS Safety Report 11292053 (Version 1)
Quarter: 2015Q3

REPORT INFORMATION
  Report Type: Spontaneous
  Country: CZ (occurrence: CZ)
  Receive Date: 20150722
  Receipt Date: 20150722
  Transmission Date: 20151125
  Serious: Yes (Hospitalization, Other)
  Sender: FDA-Public Use
  Company Number: CZ-TEVA-577234ISR

PATIENT
  Age: 27 Year
  Sex: Male
  Weight: 77 kg

DRUGS (2)
  1. SERTRALINE [Suspect]
     Active Substance: SERTRALINE HYDROCHLORIDE
     Indication: EJACULATION DISORDER
     Route: 048
     Dates: start: 201506, end: 20150624
  2. ZODAC [Concomitant]
     Indication: HYPERSENSITIVITY
     Route: 048

REACTIONS (12)
  - Loss of consciousness [Recovered/Resolved]
  - Performance status decreased [Recovered/Resolved]
  - Diarrhoea [Recovered/Resolved]
  - Hot flush [Recovered/Resolved]
  - Tremor [Recovered/Resolved]
  - Hyperhidrosis [Recovered/Resolved]
  - Asthenia [Recovered/Resolved]
  - Myalgia [Recovered/Resolved]
  - Circulatory collapse [Recovered/Resolved]
  - Serotonin syndrome [Recovered/Resolved]
  - Headache [Recovered/Resolved]
  - Malaise [Recovered/Resolved]

NARRATIVE: CASE EVENT DATE: 20150624
